FAERS Safety Report 17879644 (Version 1)
Quarter: 2020Q2

REPORT INFORMATION
  Report Type: Spontaneous
  Country: GB (occurrence: GB)
  Receive Date: 20200610
  Receipt Date: 20200610
  Transmission Date: 20200714
  Serious: Yes (Other)
  Sender: FDA-Public Use
  Company Number: GB-ACCORD-184833

PATIENT
  Age: 67 Year
  Sex: Male
  Weight: 77 kg

DRUGS (15)
  1. SALBUTAMOL [Concomitant]
     Active Substance: ALBUTEROL
     Route: 055
  2. FYBOGEL [Concomitant]
     Active Substance: PLANTAGO OVATA SEED
  3. TAMSULOSIN/TAMSULOSIN HYDROCHLORIDE [Concomitant]
     Active Substance: TAMSULOSIN HYDROCHLORIDE
  4. RAMIPRIL. [Concomitant]
     Active Substance: RAMIPRIL
  5. PENTASA [Concomitant]
     Active Substance: MESALAMINE
  6. VITAMINS NOS [Concomitant]
     Active Substance: VITAMINS
  7. INCRUSE ELLIPTA [Concomitant]
     Active Substance: UMECLIDINIUM BROMIDE
  8. DERMOL [Concomitant]
     Active Substance: BENZALKONIUM CHLORIDE\CHLORHEXIDINE HYDROCHLORIDE\ISOPROPYL MYRISTATE\PARAFFIN
  9. HYDROMOL [Concomitant]
  10. MESALAZINE [Concomitant]
     Active Substance: MESALAMINE
     Dosage: 1G/100ML
  11. MOMETASONE [Concomitant]
     Active Substance: MOMETASONE
  12. COLECALCIFEROL [Concomitant]
     Active Substance: CHOLECALCIFEROL
  13. PROTOPIC [Concomitant]
     Active Substance: TACROLIMUS
  14. SIMVASTATIN. [Suspect]
     Active Substance: SIMVASTATIN
     Indication: BLOOD CHOLESTEROL INCREASED
     Route: 048
     Dates: start: 20090126, end: 20140914
  15. ASCORBIC ACID. [Concomitant]
     Active Substance: ASCORBIC ACID

REACTIONS (1)
  - Pain in extremity [Recovered/Resolved]

NARRATIVE: CASE EVENT DATE: 20090301
